FAERS Safety Report 8370496-1 (Version None)
Quarter: 2012Q2

REPORT INFORMATION
  Report Type: 
  Country: None (occurrence: None)
  Receive Date: 20120518
  Receipt Date: 20120514
  Transmission Date: 20120825
  Serious: Yes (Life-Threatening, Hospitalization)
  Sender: FDA-Public Use
  Company Number: US-CELGENEUS-163-21880-12012638

PATIENT
  Sex: Female
  Weight: 66.4 kg

DRUGS (40)
  1. SIMVASTATIN [Concomitant]
     Dosage: 20 MILLIGRAM
     Route: 048
  2. SODIUM BICARBONATE [Concomitant]
     Indication: METABOLIC ACIDOSIS
     Dosage: 650 MILLIGRAM
     Route: 048
  3. NOREPINEPHRINE BITARTRATE [Concomitant]
     Dosage: 8 MILLIGRAM
     Route: 041
  4. DOXYCYCLINE [Concomitant]
     Dosage: 100 MILLIGRAM
     Route: 065
  5. SENOKOT [Concomitant]
     Route: 065
  6. GLUCAGON [Concomitant]
     Route: 065
  7. MIRALAX [Concomitant]
     Route: 065
  8. VITAMIIN K [Concomitant]
     Route: 065
  9. DULCOLAX [Concomitant]
     Route: 065
  10. COUMADIN [Concomitant]
     Indication: ARTERIAL THROMBOSIS
     Dosage: 4 MILLIGRAM
     Route: 048
  11. LEVOFLOXACIN [Concomitant]
     Dosage: 750 MILLIGRAM
     Route: 041
  12. CALCIUM CARBONATE [Concomitant]
     Route: 065
  13. OXYCODONE HCL [Concomitant]
     Indication: PAIN
     Dosage: 2 TABLET
     Route: 048
  14. LASIX [Concomitant]
     Route: 065
     Dates: start: 20110101
  15. SODIUM CHLORIDE [Concomitant]
     Dosage: 150ML/HR
     Route: 041
  16. VANCOMYCIN [Concomitant]
     Dosage: 1000 MILLIGRAM
     Route: 041
  17. SUPPOSITORY [Concomitant]
     Route: 065
  18. COLACE [Concomitant]
     Route: 065
  19. GLUCOSE [Concomitant]
     Route: 065
  20. FENTANYL-100 [Concomitant]
     Dosage: 50 MICROGRAM
     Route: 061
  21. MUCOMYST [Concomitant]
     Route: 065
  22. PROTONIX [Concomitant]
     Dosage: 40 MILLIGRAM
     Route: 048
  23. LEVOFLOXACIN [Concomitant]
     Dosage: 500 MILLIGRAM
     Route: 041
  24. ASPIRIN [Concomitant]
     Dosage: 325 MILLIGRAM
     Route: 048
  25. ZOLPIDEM [Concomitant]
     Indication: SLEEP DISORDER
     Dosage: 5 MILLIGRAM
     Route: 048
  26. LANTUS [Concomitant]
     Dosage: 10 UNITS
     Route: 058
  27. POLYETHYLENE GLYCOL [Concomitant]
     Indication: CONSTIPATION
     Dosage: 17 GRAM
     Route: 048
  28. BENAZEPRIL HYDROCHLORIDE [Concomitant]
     Route: 065
  29. PERCOCET [Concomitant]
     Indication: PAIN
     Dosage: 5/325 MG
     Route: 048
  30. MAGNESIUM HYDROXIDE TAB [Concomitant]
     Route: 065
  31. REVLIMID [Suspect]
     Indication: MULTIPLE MYELOMA
     Dosage: 15 MILLIGRAM
     Route: 048
     Dates: start: 20111108
  32. REVLIMID [Suspect]
     Dosage: 15 MILLIGRAM
     Route: 048
     Dates: start: 20120105
  33. VORICONAZOLE [Concomitant]
     Route: 065
  34. INSULIN LISPRO [Concomitant]
     Route: 065
  35. DEXAMETHASONE [Suspect]
     Indication: MULTIPLE MYELOMA
     Dosage: 40 MILLIGRAM
     Route: 065
     Dates: start: 20111110
  36. PLAVIX [Concomitant]
     Dosage: 75 MILLIGRAM
     Route: 048
  37. LANTUS [Concomitant]
     Dosage: 15 UNITS
     Route: 058
  38. LISINOPRIL [Concomitant]
     Indication: HYPERTENSION
     Dosage: 10 MILLIGRAM
     Route: 048
  39. CEPHALEXIN [Concomitant]
     Indication: CELLULITIS
     Dosage: 1 TABLET
     Route: 048
  40. MORPHINE [Concomitant]
     Indication: PAIN
     Dosage: 2 MILLIGRAM
     Route: 041

REACTIONS (5)
  - SEPTIC SHOCK [None]
  - RENAL FAILURE ACUTE [None]
  - PNEUMONIA [None]
  - PERIPHERAL ARTERIAL OCCLUSIVE DISEASE [None]
  - PANCYTOPENIA [None]
